FAERS Safety Report 14811848 (Version 1)
Quarter: 2018Q2

REPORT INFORMATION
  Report Type: Report from Study
  Country: US (occurrence: US)
  Receive Date: 20180425
  Receipt Date: 20180425
  Transmission Date: 20180711
  Serious: Yes (Hospitalization, Other)
  Sender: FDA-Public Use
  Company Number: US-AMGEN-USASL2018027276

PATIENT
  Sex: Female
  Weight: 79.37 kg

DRUGS (4)
  1. LANTUS [Concomitant]
     Active Substance: INSULIN GLARGINE
  2. REPATHA [Suspect]
     Active Substance: EVOLOCUMAB
     Dosage: 140 MG/ML, UNK
     Route: 065
     Dates: start: 20160330, end: 20180228
  3. LANTUS [Concomitant]
     Active Substance: INSULIN GLARGINE
     Dosage: UNK, QD
  4. REPATHA [Suspect]
     Active Substance: EVOLOCUMAB
     Indication: HYPERCHOLESTEROLAEMIA
     Dosage: 140 MG, Q2WK
     Route: 065

REACTIONS (7)
  - Injection site vesicles [Recovered/Resolved]
  - Rhinorrhoea [Unknown]
  - Hypertension [Unknown]
  - Back pain [Unknown]
  - Blood glucose increased [Unknown]
  - Memory impairment [Unknown]
  - Stress [Unknown]
